FAERS Safety Report 12652826 (Version 3)
Quarter: 2019Q1

REPORT INFORMATION
  Report Type: Report from Study
  Country: JP (occurrence: JP)
  Receive Date: 20160815
  Receipt Date: 20190328
  Transmission Date: 20190417
  Serious: Yes (Hospitalization)
  Sender: FDA-Public Use
  Company Number: JP-NOVOPROD-504692

PATIENT
  Age: 11 Month
  Sex: Male
  Weight: 16 kg

DRUGS (1)
  1. NOVOEIGHT [Suspect]
     Active Substance: ANTIHEMOPHILIC FACTOR, HUMAN RECOMBINANT
     Indication: FACTOR VIII DEFICIENCY
     Dosage: 250 IU TWICE WEEKLY AT FIRST  AND CHANGED 250 IU THREE TIMES A WEEK
     Route: 042
     Dates: start: 20160226

REACTIONS (3)
  - Vascular device infection [Recovered/Resolved]
  - Infection [Unknown]
  - Vascular device infection [Unknown]

NARRATIVE: CASE EVENT DATE: 20160803
